FAERS Safety Report 6152727-1 (Version None)
Quarter: 2009Q2

REPORT INFORMATION
  Report Type: 
  Country: None (occurrence: None)
  Receive Date: 20090413
  Receipt Date: 20090401
  Transmission Date: 20091009
  Serious: Yes (Hospitalization)
  Sender: FDA-Public Use
  Company Number: US-ROCHE-625285

PATIENT
  Age: 69 Year
  Sex: Female

DRUGS (7)
  1. BONIVA [Suspect]
     Route: 065
     Dates: start: 20050101
  2. NITROFURANTOIN [Suspect]
     Indication: URINARY TRACT INFECTION
     Dosage: DRUG: GENERIC MACROBID
     Route: 065
  3. NEURONTIN [Concomitant]
  4. CARDIZEM [Concomitant]
     Dosage: DRUG: GENERIC CARDIZEM
  5. ESTRACE [Concomitant]
  6. CLONAZEPAM [Concomitant]
  7. MAXALT [Concomitant]

REACTIONS (5)
  - ABDOMINAL DISCOMFORT [None]
  - DYSPNOEA [None]
  - HEADACHE [None]
  - TINNITUS [None]
  - URINARY TRACT INFECTION [None]
